FAERS Safety Report 13840339 (Version 1)
Quarter: 2017Q3

REPORT INFORMATION
  Report Type: Spontaneous
  Country: US (occurrence: US)
  Receive Date: 20170807
  Receipt Date: 20170807
  Transmission Date: 20171127
  Serious: No
  Sender: FDA-Public Use
  Company Number: US-AEGERION PHARMACEUTICAL, INC-AEGR003256

PATIENT
  Sex: Female

DRUGS (1)
  1. MYALEPT [Suspect]
     Active Substance: METRELEPTIN
     Indication: LIPODYSTROPHY ACQUIRED
     Dosage: 1 ML, QD
     Route: 058
     Dates: start: 201601

REACTIONS (1)
  - Injection site swelling [Unknown]
